FAERS Safety Report 7319259-6 (Version None)
Quarter: 2011Q1

REPORT INFORMATION
  Report Type: 
  Country: None (occurrence: None)
  Receive Date: 20110228
  Receipt Date: 20100719
  Transmission Date: 20110831
  Serious: No
  Sender: FDA-Public Use
  Company Number: A0803085A

PATIENT
  Age: 24 Year
  Sex: Female
  Weight: 82.3 kg

DRUGS (5)
  1. VITAMIN AND MINERAL PRENATAL SUPPLEMENT W/ FOLIC ACID CAP [Concomitant]
     Dosage: 1TAB PER DAY
     Route: 048
     Dates: start: 20090801
  2. LAMICTAL [Suspect]
     Dosage: 150MG PER DAY
     Route: 048
     Dates: start: 20060601
  3. TUBERCULOSIS VACCINE [Concomitant]
     Dates: start: 20090801
  4. TYLENOL [Concomitant]
     Indication: HEADACHE
     Dosage: 1500MG PER DAY
     Route: 048
  5. TUMS [Concomitant]
     Dosage: 2TAB PER DAY
     Route: 048

REACTIONS (1)
  - DRUG EXPOSURE DURING PREGNANCY [None]
